FAERS Safety Report 11831021 (Version 1)
Quarter: 2015Q4

REPORT INFORMATION
  Report Type: Spontaneous
  Country: AT (occurrence: AT)
  Receive Date: 20151214
  Receipt Date: 20151214
  Transmission Date: 20160305
  Serious: Yes (Other)
  Sender: FDA-Public Use
  Company Number: PHHY2015AT047571

PATIENT
  Sex: Male

DRUGS (5)
  1. XEPLION [Suspect]
     Active Substance: PALIPERIDONE PALMITATE
     Indication: PRODUCT USED FOR UNKNOWN INDICATION
     Dosage: 100 OT, QMO
     Route: 065
     Dates: start: 20140903
  2. DEPARKIN [Suspect]
     Active Substance: DIETHAZINE HYDROCHLORIDE
     Indication: PRODUCT USED FOR UNKNOWN INDICATION
     Route: 065
  3. LEPONEX [Suspect]
     Active Substance: CLOZAPINE
     Indication: MANIA
     Dosage: 150 MG, QD
     Route: 065
     Dates: start: 20150325
  4. LEPONEX [Suspect]
     Active Substance: CLOZAPINE
     Dosage: 400 MG, UNK
     Route: 065
  5. LEPONEX [Suspect]
     Active Substance: CLOZAPINE
     Dosage: REDUCED 50 MG EVERY WEEK
     Route: 065
     Dates: end: 20151130

REACTIONS (8)
  - Insomnia [Unknown]
  - Heart rate irregular [Unknown]
  - Tachyarrhythmia [Unknown]
  - Off label use [Unknown]
  - Tachycardia [Unknown]
  - Blood triglycerides increased [Unknown]
  - Drug ineffective [Unknown]
  - Fatigue [Unknown]

NARRATIVE: CASE EVENT DATE: 20150601
